FAERS Safety Report 8134351-4 (Version None)
Quarter: 2012Q1

REPORT INFORMATION
  Report Type: 
  Country: None (occurrence: None)
  Receive Date: 20120209
  Receipt Date: 20120127
  Transmission Date: 20120608
  Serious: Yes (Hospitalization, Other)
  Sender: FDA-Public Use
  Company Number: IMP_05728_2012

PATIENT
  Age: 53 Year
  Sex: Male

DRUGS (1)
  1. METFORMIN HCL [Suspect]
     Indication: TYPE 2 DIABETES MELLITUS

REACTIONS (21)
  - BLOOD PRESSURE INCREASED [None]
  - PSYCHOMOTOR HYPERACTIVITY [None]
  - VOMITING [None]
  - DECREASED APPETITE [None]
  - ACCIDENTAL POISONING [None]
  - SHOCK [None]
  - RENAL FAILURE [None]
  - ASTHENIA [None]
  - DEHYDRATION [None]
  - CARDIAC FAILURE [None]
  - DEPRESSED LEVEL OF CONSCIOUSNESS [None]
  - PROTEIN TOTAL INCREASED [None]
  - PNEUMONIA [None]
  - SOMNOLENCE [None]
  - NAUSEA [None]
  - HYPOPERFUSION [None]
  - RENAL FAILURE ACUTE [None]
  - DISORIENTATION [None]
  - HALLUCINATION [None]
  - METABOLIC ACIDOSIS [None]
  - DRUG LEVEL ABOVE THERAPEUTIC [None]
